FAERS Safety Report 25657622 (Version 1)
Quarter: 2025Q3

REPORT INFORMATION
  Report Type: Spontaneous
  Country: US (occurrence: US)
  Receive Date: 20250808
  Receipt Date: 20250808
  Transmission Date: 20251021
  Serious: No
  Sender: RANBAXY
  Company Number: US-SUN PHARMACEUTICAL INDUSTRIES LTD-2024R1-462438

PATIENT
  Sex: Female

DRUGS (2)
  1. ODOMZO [Suspect]
     Active Substance: SONIDEGIB
     Indication: Basal cell carcinoma
     Dosage: 1 CAPSULE, QD
     Route: 048
     Dates: start: 20240604, end: 20240806
  2. ODOMZO [Suspect]
     Active Substance: SONIDEGIB
     Dosage: 1 CAPSULE, QD
     Route: 048
     Dates: start: 20240604, end: 20240806

REACTIONS (5)
  - Dehydration [Unknown]
  - Electrolyte depletion [Unknown]
  - Muscle spasms [Unknown]
  - Off label use [Unknown]
  - Product use issue [Unknown]
